FAERS Safety Report 6246340-5 (Version None)
Quarter: 2009Q2

REPORT INFORMATION
  Report Type: 
  Country: None (occurrence: None)
  Receive Date: 20090624
  Receipt Date: 20090624
  Transmission Date: 20091009
  Serious: Yes (Other)
  Sender: FDA-Public Use
  Company Number: None

PATIENT
  Age: 33 Year
  Sex: Male

DRUGS (9)
  1. MAALOX QUICK DISSOLVE EXTRA STRENGTH (NCH)(CALCIUM CARBONATE) CHEWABLE [Suspect]
     Indication: DYSPEPSIA
     Dosage: 1-2 DF, PRN, ORAL
     Route: 048
     Dates: start: 20080101, end: 20090601
  2. MAALOX QUICK DISSOLVE EXTRA STRENGTH (NCH)(CALCIUM CARBONATE) CHEWABLE [Suspect]
     Indication: GASTROOESOPHAGEAL REFLUX DISEASE
     Dosage: 1-2 DF, PRN, ORAL
     Route: 048
     Dates: start: 20080101, end: 20090601
  3. DIAMICRON (GLICAZIDE) [Concomitant]
  4. GLYBURIDE [Concomitant]
  5. METFORMIN HCL [Concomitant]
  6. BUPROPION HCL [Concomitant]
  7. CARBAMAZEPINE [Concomitant]
  8. VALPROATE SODIUM [Concomitant]
  9. LIPITOR /NET/ (ATROVASTATIN CALCIUM) [Concomitant]

REACTIONS (2)
  - MUSCLE TWITCHING [None]
  - TREMOR [None]
